FAERS Safety Report 13840622 (Version 1)
Quarter: 2017Q3

REPORT INFORMATION
  Report Type: Report from Study
  Country: US (occurrence: US)
  Receive Date: 20170807
  Receipt Date: 20170807
  Transmission Date: 20171127
  Serious: Yes (Hospitalization)
  Sender: FDA-Public Use
  Company Number: US-VIFOR (INTERNATIONAL) INC.-VIT-2017-08176

PATIENT
  Age: 51 Year
  Sex: Female

DRUGS (12)
  1. INSULIN DETEMIR [Concomitant]
     Active Substance: INSULIN DETEMIR
  2. REPAGLINIDE. [Concomitant]
     Active Substance: REPAGLINIDE
  3. CHLORTALIDONE [Concomitant]
     Active Substance: CHLORTHALIDONE
  4. GABAPENTIN. [Concomitant]
     Active Substance: GABAPENTIN
  5. LORATADINE. [Concomitant]
     Active Substance: LORATADINE
  6. ROPINIROLE HYDROCHLORIDE. [Concomitant]
     Active Substance: ROPINIROLE HYDROCHLORIDE
  7. FUROSEMIDE. [Concomitant]
     Active Substance: FUROSEMIDE
  8. LISINOPRIL. [Concomitant]
     Active Substance: LISINOPRIL
  9. AMLODIPINE [Concomitant]
     Active Substance: AMLODIPINE BESYLATE
  10. VELTASSA [Suspect]
     Active Substance: PATIROMER
     Indication: HYPERKALAEMIA
     Route: 048
     Dates: start: 20170414
  11. ATORVASTATIN [Concomitant]
     Active Substance: ATORVASTATIN
  12. APAP [Concomitant]
     Active Substance: ACETAMINOPHEN

REACTIONS (1)
  - Urinary tract infection [Not Recovered/Not Resolved]

NARRATIVE: CASE EVENT DATE: 20170707
